FAERS Safety Report 9463809 (Version 1)
Quarter: 2013Q3

REPORT INFORMATION
  Report Type: Spontaneous
  Country: SE (occurrence: SE)
  Receive Date: 20130819
  Receipt Date: 20130819
  Transmission Date: 20140515
  Serious: Yes (Other)
  Sender: FDA-Public Use
  Company Number: SE-ASTELLAS-2013EU006900

PATIENT
  Sex: Female

DRUGS (1)
  1. PROGRAF [Suspect]
     Dosage: UNK
     Route: 065
     Dates: end: 20130619

REACTIONS (14)
  - Fatigue [Unknown]
  - Dysarthria [Unknown]
  - Balance disorder [Unknown]
  - Gait disturbance [Unknown]
  - Mental disorder [Unknown]
  - Personality change [Unknown]
  - Haematoma [Unknown]
  - Infection susceptibility increased [Unknown]
  - Convulsion [Unknown]
  - Loss of consciousness [Unknown]
  - Tinnitus [Unknown]
  - Cough [Unknown]
  - Hyperhidrosis [Unknown]
  - Asthma [Unknown]
